FAERS Safety Report 19144682 (Version 1)
Quarter: 2021Q2

REPORT INFORMATION
  Report Type: Spontaneous
  Country: GB (occurrence: GB)
  Receive Date: 20210416
  Receipt Date: 20210416
  Transmission Date: 20210717
  Serious: Yes (Hospitalization)
  Sender: FDA-Public Use
  Company Number: GB-NOVOPROD-801997

PATIENT
  Sex: Male

DRUGS (2)
  1. OZEMPIC [Suspect]
     Active Substance: SEMAGLUTIDE
     Dosage: NOW ON 0.5MG MAINTENANCE DOSE
     Route: 065
  2. OZEMPIC [Suspect]
     Active Substance: SEMAGLUTIDE
     Indication: PRODUCT USED FOR UNKNOWN INDICATION
     Dosage: STARTED ON SEMAGLUTIDE 1X WEEKLY 9 WEEKS
     Route: 065

REACTIONS (7)
  - Hepatic steatosis [Unknown]
  - Flatulence [Unknown]
  - Faecaloma [Unknown]
  - Hyperhidrosis [Unknown]
  - Abdominal distension [Unknown]
  - Eructation [Unknown]
  - Malaise [Unknown]
